FAERS Safety Report 6058228-3 (Version None)
Quarter: 2009Q1

REPORT INFORMATION
  Report Type: 
  Country: None (occurrence: None)
  Receive Date: 20090130
  Receipt Date: 20090122
  Transmission Date: 20090719
  Serious: Yes (Hospitalization)
  Sender: FDA-Public Use
  Company Number: JP-JNJFOC-20090106344

PATIENT
  Age: 69 Year
  Sex: Female

DRUGS (8)
  1. RISPERDAL [Suspect]
     Indication: SCHIZOPHRENIA
     Route: 048
  2. RISPERDAL [Suspect]
     Indication: DRUG USE FOR UNKNOWN INDICATION
     Route: 048
  3. ALOTEC [Concomitant]
     Route: 048
  4. AKIRIDEN [Concomitant]
     Route: 048
  5. SLOWHEIM [Concomitant]
     Route: 048
  6. ORIVATE [Concomitant]
     Route: 048
  7. CYSVON [Concomitant]
     Route: 048
  8. SENNARIDE [Concomitant]
     Route: 048

REACTIONS (2)
  - URINARY RETENTION [None]
  - URINARY TRACT INFECTION [None]
